FAERS Safety Report 18663723 (Version 4)
Quarter: 2021Q1

REPORT INFORMATION
  Report Type: Spontaneous
  Country: DE (occurrence: DE)
  Receive Date: 20201225
  Receipt Date: 20210225
  Transmission Date: 20210419
  Serious: Yes (Hospitalization, Other)
  Sender: FDA-Public Use
  Company Number: DE-SA-2020SA363344

PATIENT
  Age: 47 Year
  Sex: Female
  Weight: 55 kg

DRUGS (1)
  1. CABLIVI [Suspect]
     Active Substance: CAPLACIZUMAB-YHDP
     Indication: THROMBOTIC THROMBOCYTOPENIC PURPURA
     Dosage: UNK
     Route: 065
     Dates: start: 20201125

REACTIONS (11)
  - Blood lactate dehydrogenase abnormal [Unknown]
  - Cerebrovascular accident [Unknown]
  - COVID-19 [Unknown]
  - Red blood cell schistocytes present [Unknown]
  - Hemiplegia [Unknown]
  - Platelet count abnormal [Unknown]
  - Multiple organ dysfunction syndrome [Unknown]
  - Haptoglobin abnormal [Unknown]
  - Thrombotic thrombocytopenic purpura [Unknown]
  - Haemoglobin abnormal [Unknown]
  - Troponin increased [Unknown]

NARRATIVE: CASE EVENT DATE: 2020
